FAERS Safety Report 9561322 (Version 1)
Quarter: 2013Q3

REPORT INFORMATION
  Report Type: Spontaneous
  Country: FR (occurrence: None)
  Receive Date: 20130925
  Receipt Date: 20130925
  Transmission Date: 20140515
  Serious: Yes (Hospitalization)
  Sender: FDA-Public Use
  Company Number: 1886974

PATIENT
  Age: 59 Year
  Sex: Female

DRUGS (1)
  1. (CARBOPLATIN) [Suspect]
     Indication: PRODUCT USED FOR UNKNOWN INDICATION
     Dosage: 600 MG MILLIGRAM(S), UNKNOWN, INTRAVENOUS (NOT OTHERWISE SPECIFIED)
     Route: 042
     Dates: start: 20120904, end: 20120904

REACTIONS (7)
  - Oral pain [None]
  - Loss of consciousness [None]
  - Blood pressure decreased [None]
  - Vomiting [None]
  - Malaise [None]
  - Pruritus [None]
  - Hypersensitivity [None]
